FAERS Safety Report 8818836 (Version 1)
Quarter: 2012Q4

REPORT INFORMATION
  Report Type: 
  Country: MX (occurrence: MX)
  Receive Date: 20121001
  Receipt Date: 20121001
  Transmission Date: 20130627
  Serious: Yes (Death)
  Sender: FDA-Public Use
  Company Number: PHHY2012MX084171

PATIENT
  Age: 73 Year
  Sex: Male

DRUGS (1)
  1. EXELON PATCH [Suspect]
     Dosage: 1 patch (4.6 mg) daily
     Route: 062
     Dates: start: 201201

REACTIONS (1)
  - Myocardial infarction [Fatal]
